FAERS Safety Report 12785014 (Version 2)
Quarter: 2017Q3

REPORT INFORMATION
  Report Type: Spontaneous
  Country: US (occurrence: US)
  Receive Date: 20160927
  Receipt Date: 20170901
  Transmission Date: 20171127
  Serious: No
  Sender: FDA-Public Use
  Company Number: US-TOLMAR, INC.-2016US006050

PATIENT
  Sex: Male

DRUGS (3)
  1. ELIGARD [Suspect]
     Active Substance: LEUPROLIDE ACETATE
     Dosage: 45 MG, 6 MONTH DOSE
     Route: 058
     Dates: start: 20160601
  2. ELIGARD [Suspect]
     Active Substance: LEUPROLIDE ACETATE
     Indication: PROSTATE CANCER
     Dosage: 45 MG, 6 MONTH DOSE
     Route: 058
     Dates: start: 20150210
  3. ELIGARD [Suspect]
     Active Substance: LEUPROLIDE ACETATE
     Indication: PROSTATE CANCER
     Dosage: 7.5 MG, 1 MONTH DOSE
     Route: 058
     Dates: start: 20150201

REACTIONS (4)
  - Hot flush [Recovered/Resolved]
  - Fatigue [Recovered/Resolved]
  - Inappropriate schedule of drug administration [Unknown]
  - Treatment noncompliance [Unknown]
